FAERS Safety Report 11400239 (Version 1)
Quarter: 2015Q3

REPORT INFORMATION
  Report Type: Spontaneous
  Country: FR (occurrence: FR)
  Receive Date: 20150820
  Receipt Date: 20150820
  Transmission Date: 20151125
  Serious: Yes (Other)
  Sender: FDA-Public Use
  Company Number: FR-GLAXOSMITHKLINE-FR2015GSK118906

PATIENT
  Sex: Female

DRUGS (15)
  1. ALKERAN [Suspect]
     Active Substance: MELPHALAN
     Indication: PLASMA CELL MYELOMA
     Dosage: 5.1429 MG/D (9 MG,4 IN 1 WK)
     Route: 048
     Dates: start: 20150421
  2. MOLSIDOMINE [Concomitant]
     Active Substance: MOLSIDOMINE
     Route: 048
  3. TANAKAN [Concomitant]
     Active Substance: GINKGO
     Dosage: 40 MG, 1D
     Route: 048
  4. PERINDOPRIL [Concomitant]
     Active Substance: PERINDOPRIL
     Dosage: 5 MG, 1D
     Route: 048
  5. CITALOPRAM [Concomitant]
     Active Substance: CITALOPRAM HYDROBROMIDE
     Dosage: 10 MG, 1D
     Route: 048
  6. ALPRAZOLAM. [Concomitant]
     Active Substance: ALPRAZOLAM
     Dosage: 0.25 MG, 1D
     Route: 048
  7. LOVENOX [Concomitant]
     Active Substance: ENOXAPARIN SODIUM
     Dosage: 0.6 ML, 1D
     Route: 058
  8. LORATIDINE [Concomitant]
     Active Substance: LORATADINE
     Dosage: 5 MG, 1D
     Route: 048
  9. INDAPAMIDE. [Concomitant]
     Active Substance: INDAPAMIDE
     Dosage: 1.25 UNK, UNK
     Route: 048
  10. PANTOPRAZOLE [Concomitant]
     Active Substance: PANTOPRAZOLE SODIUM
     Dosage: 20 MG, 1D
     Route: 048
  11. VELCADE [Concomitant]
     Active Substance: BORTEZOMIB
     Dosage: UNK
     Route: 058
  12. SIMVASTATIN. [Concomitant]
     Active Substance: SIMVASTATIN
     Dosage: 40 MG, 1D
     Route: 048
  13. CORTANCYL [Suspect]
     Active Substance: PREDNISONE
     Indication: PLASMA CELL MYELOMA
     Dosage: 70.8571 MG/D (124 MG,4 IN 1 WK)
     Route: 048
     Dates: start: 20150421
  14. BISOPROLOL [Concomitant]
     Active Substance: BISOPROLOL
     Dosage: 1.25 MG, BID
     Route: 048
  15. CERIS [Concomitant]
     Active Substance: TROSPIUM CHLORIDE
     Dosage: 1 DF, 1D (20MG)
     Route: 048

REACTIONS (1)
  - Bicytopenia [Not Recovered/Not Resolved]
